FAERS Safety Report 9454326 (Version 3)
Quarter: 2013Q4

REPORT INFORMATION
  Report Type: Report from Study
  Country: BR (occurrence: BR)
  Receive Date: 20130812
  Receipt Date: 20131007
  Transmission Date: 20140711
  Serious: Yes (Other)
  Sender: FDA-Public Use
  Company Number: PHHY2013BR084598

PATIENT
  Age: 54 Year
  Sex: Female
  Weight: 78 kg

DRUGS (6)
  1. SANDOSTATIN LAR [Suspect]
     Indication: ACROMEGALY
     Dosage: 1 DF (30 MG), EVERY 28 DAYS
     Route: 030
  2. CABERGOLINA [Concomitant]
     Dosage: UNK UKN, UNK
  3. DOSTINEX [Concomitant]
     Indication: ACROMEGALY
     Dosage: 1 DF, AT NIGHT
     Route: 048
  4. ENDOFOLIN [Concomitant]
     Dosage: DAILY
  5. AMITRIPTYLIN [Concomitant]
     Indication: APPETITE DISORDER
     Dosage: 2 DF, AT NIGHT
     Route: 048
  6. AMITRIPTYLIN [Concomitant]
     Indication: SLEEP DISORDER

REACTIONS (19)
  - Calcium deficiency [Recovered/Resolved]
  - Osteoporosis [Recovered/Resolved]
  - Brain neoplasm [Recovering/Resolving]
  - Bone neoplasm [Recovered/Resolved]
  - Hallucination [Recovered/Resolved]
  - Delirium [Recovered/Resolved]
  - Brain oedema [Recovering/Resolving]
  - Convulsion [Unknown]
  - Lung neoplasm malignant [Recovering/Resolving]
  - Aphasia [Recovering/Resolving]
  - Spinal pain [Recovered/Resolved]
  - Dysgraphia [Recovering/Resolving]
  - Metastasis [Recovered/Resolved]
  - Speech disorder [Recovering/Resolving]
  - Metastases to bone [Recovering/Resolving]
  - Confusional state [Unknown]
  - Pain [Not Recovered/Not Resolved]
  - Blood cholesterol abnormal [Not Recovered/Not Resolved]
  - Dysarthria [Recovering/Resolving]
